FAERS Safety Report 7951872-5 (Version None)
Quarter: 2011Q4

REPORT INFORMATION
  Report Type: 
  Country: None (occurrence: None)
  Receive Date: 20111201
  Receipt Date: 20111201
  Transmission Date: 20120403
  Serious: Yes (Hospitalization)
  Sender: FDA-Public Use
  Company Number: None

PATIENT
  Sex: Male
  Weight: 87.543 kg

DRUGS (1)
  1. LOVASTATIN [Suspect]
     Indication: BLOOD CHOLESTEROL INCREASED
     Dosage: 40MG
     Route: 048
     Dates: start: 20090101, end: 20111118

REACTIONS (5)
  - DYSSTASIA [None]
  - LETHARGY [None]
  - AMNESIA [None]
  - GAIT DISTURBANCE [None]
  - NASOPHARYNGITIS [None]
